FAERS Safety Report 6958192-6 (Version None)
Quarter: 2010Q3

REPORT INFORMATION
  Report Type: 
  Country: None (occurrence: None)
  Receive Date: 20100827
  Receipt Date: 20100827
  Transmission Date: 20110219
  Serious: No
  Sender: FDA-Public Use
  Company Number: None

PATIENT
  Age: 73 Year
  Sex: Female
  Weight: 81.6475 kg

DRUGS (1)
  1. LEVAQUIN [Suspect]
     Indication: SINUSITIS
     Dosage: 1 TAB - 500MG ONCE A DAY BY MOUTH
     Dates: start: 20100730

REACTIONS (6)
  - DIZZINESS [None]
  - INSOMNIA [None]
  - NERVOUSNESS [None]
  - PARANOIA [None]
  - RESTLESSNESS [None]
  - TREMOR [None]
